FAERS Safety Report 15504835 (Version 1)
Quarter: 2018Q4

REPORT INFORMATION
  Report Type: Spontaneous
  Country: US (occurrence: US)
  Receive Date: 20181016
  Receipt Date: 20181016
  Transmission Date: 20190205
  Serious: Yes (Other)
  Sender: FDA-Public Use
  Company Number: US-SA-2018SA281846

PATIENT
  Age: 75 Year
  Sex: Female

DRUGS (3)
  1. ASCRIPTIN [Suspect]
     Active Substance: ASPIRIN
     Indication: ANTICOAGULANT THERAPY
     Dosage: 325 MG, QD
     Route: 048
  2. PLAVIX [Suspect]
     Active Substance: CLOPIDOGREL BISULFATE
     Indication: ANTICOAGULANT THERAPY
     Dosage: UNK UNK, UNK
     Route: 065
     Dates: start: 2009
  3. ACETYLSALICYLIC ACID [Suspect]
     Active Substance: ASPIRIN
     Dosage: 81 MG, QD
     Route: 048
     Dates: start: 2009, end: 20140818

REACTIONS (7)
  - Incorrect product administration duration [Unknown]
  - Gastritis erosive [Recovered/Resolved]
  - Retinal haemorrhage [Not Recovered/Not Resolved]
  - Dyspepsia [Recovered/Resolved]
  - Myocardial infarction [Recovered/Resolved]
  - Gastrooesophageal reflux disease [Recovered/Resolved]
  - Off label use [Unknown]

NARRATIVE: CASE EVENT DATE: 201408
